FAERS Safety Report 7572515-9 (Version None)
Quarter: 2011Q2

REPORT INFORMATION
  Report Type: 
  Country: None (occurrence: None)
  Receive Date: 20110627
  Receipt Date: 20110617
  Transmission Date: 20111010
  Serious: Yes (Congenital Anomaly, Other)
  Sender: FDA-Public Use
  Company Number: FR-BIOGENIDEC-2011BI019964

PATIENT
  Age: 40 Year
  Sex: Female

DRUGS (6)
  1. CERIS [Concomitant]
  2. OMEXEL [Concomitant]
  3. DEPAKENE [Concomitant]
  4. KEPPRA [Concomitant]
  5. TYSABRI [Suspect]
     Indication: MULTIPLE SCLEROSIS
     Route: 042
     Dates: start: 20081208
  6. URBANYL [Concomitant]
     Dates: end: 20100701

REACTIONS (2)
  - ABORTION SPONTANEOUS [None]
  - PREGNANCY [None]
